FAERS Safety Report 16473437 (Version 4)
Quarter: 2020Q4

REPORT INFORMATION
  Report Type: Other
  Country: CA (occurrence: CA)
  Receive Date: 20190625
  Receipt Date: 20201217
  Transmission Date: 20210113
  Serious: Yes (Hospitalization, Other)
  Sender: FDA-Public Use
  Company Number: CA-ROCHE-2230930

PATIENT
  Age: 55 Year
  Sex: Female

DRUGS (24)
  1. MODAFINIL. [Concomitant]
     Active Substance: MODAFINIL
  2. DOCUSATE [Concomitant]
     Active Substance: DOCUSATE
  3. TYLENOL [Concomitant]
     Active Substance: ACETAMINOPHEN
     Dosage: ONGOING:YES
     Route: 048
     Dates: start: 20161209
  4. RITUXAN [Suspect]
     Active Substance: RITUXIMAB
     Indication: RHEUMATOID ARTHRITIS
     Dosage: PREVIOUS RITUXAN INFUSION: 17-MAY-2019.
     Route: 042
     Dates: start: 20161209
  5. SPIRIVA [Concomitant]
     Active Substance: TIOTROPIUM BROMIDE MONOHYDRATE
  6. NABILONE [Concomitant]
     Active Substance: NABILONE
  7. PREDNISONE. [Concomitant]
     Active Substance: PREDNISONE
  8. HYDROXYCHLOROQUINE [Concomitant]
     Active Substance: HYDROXYCHLOROQUINE
  9. ATORVASTATIN [Concomitant]
     Active Substance: ATORVASTATIN
  10. DILAUDID [Concomitant]
     Active Substance: HYDROMORPHONE HYDROCHLORIDE
  11. FOLIC ACID. [Concomitant]
     Active Substance: FOLIC ACID
  12. METHOTREXATE. [Concomitant]
     Active Substance: METHOTREXATE
  13. ALENDRONATE [Concomitant]
     Active Substance: ALENDRONATE SODIUM
  14. SULFASALAZINE. [Concomitant]
     Active Substance: SULFASALAZINE
  15. PANTOPRAZOLE [Concomitant]
     Active Substance: PANTOPRAZOLE
  16. SOLU-MEDROL [Concomitant]
     Active Substance: METHYLPREDNISOLONE SODIUM SUCCINATE
     Dosage: ONGOING:YES
     Route: 042
     Dates: start: 20161209
  17. MORPHIN [Concomitant]
     Active Substance: MORPHINE
  18. PLAQUENIL [Concomitant]
     Active Substance: HYDROXYCHLOROQUINE SULFATE
  19. DULOXETINE. [Concomitant]
     Active Substance: DULOXETINE
  20. GLYBURIDE. [Concomitant]
     Active Substance: GLYBURIDE
  21. EURO D [Concomitant]
  22. PREGABALIN. [Concomitant]
     Active Substance: PREGABALIN
  23. MORPHINE [Concomitant]
     Active Substance: MORPHINE
  24. BENADRYL [Concomitant]
     Active Substance: DIPHENHYDRAMINE HYDROCHLORIDE
     Dosage: ONGOING:YES
     Route: 048
     Dates: start: 20161209

REACTIONS (13)
  - Blood pressure systolic increased [Unknown]
  - Body temperature decreased [Unknown]
  - Back pain [Not Recovered/Not Resolved]
  - Spinal pain [Unknown]
  - Upper limb fracture [Not Recovered/Not Resolved]
  - Spinal compression fracture [Unknown]
  - Blood pressure increased [Unknown]
  - Fall [Unknown]
  - Oxygen saturation decreased [Unknown]
  - Infusion related reaction [Unknown]
  - Blood pressure systolic abnormal [Unknown]
  - Heart rate decreased [Unknown]
  - Fall [Unknown]

NARRATIVE: CASE EVENT DATE: 201811
